FAERS Safety Report 10081315 (Version 2)
Quarter: 2014Q2

REPORT INFORMATION
  Report Type: Spontaneous
  Country: JP (occurrence: JP)
  Receive Date: 20140416
  Receipt Date: 20140424
  Transmission Date: 20141212
  Serious: Yes (Other)
  Sender: FDA-Public Use
  Company Number: JP-JNJFOC-20140409188

PATIENT
  Age: 81 Year
  Sex: Male

DRUGS (5)
  1. TRAMCET [Suspect]
     Indication: PAIN
     Dosage: 3 TABLETS PER DAY
     Route: 048
     Dates: start: 20131030
  2. LYRICA [Suspect]
     Indication: TRIGEMINAL NEURALGIA
     Dosage: 150MG PER DAY
     Route: 048
  3. LUDIOMIL [Suspect]
     Indication: PRODUCT USED FOR UNKNOWN INDICATION
     Dosage: 20MG PER DAY
     Route: 048
  4. LEXOTAN [Suspect]
     Indication: PRODUCT USED FOR UNKNOWN INDICATION
     Dosage: 4MG PER DAY
     Route: 048
  5. AMLODIPINE [Concomitant]
     Dosage: 5 MG PER DAY
     Route: 048

REACTIONS (6)
  - Quadriplegia [Unknown]
  - Ataxia [Unknown]
  - Disorientation [Unknown]
  - Memory impairment [Unknown]
  - Dysarthria [Unknown]
  - Hyporeflexia [Unknown]
